FAERS Safety Report 7595221-3 (Version None)
Quarter: 2011Q2

REPORT INFORMATION
  Report Type: 
  Country: None (occurrence: None)
  Receive Date: 20110620
  Receipt Date: 20110303
  Transmission Date: 20111010
  Serious: Yes (Hospitalization)
  Sender: FDA-Public Use
  Company Number: UTC-005520

PATIENT
  Age: 31 Year
  Sex: Female
  Weight: 93.6 kg

DRUGS (2)
  1. DIURETICS (DIURETICS) [Concomitant]
  2. TYVASO [Suspect]
     Indication: COR PULMONALE CHRONIC
     Dosage: 18 MCG, INHALATION
     Route: 055
     Dates: start: 20110214

REACTIONS (2)
  - DYSPNOEA [None]
  - SICKLE CELL ANAEMIA WITH CRISIS [None]
